FAERS Safety Report 11135574 (Version 1)
Quarter: 2015Q2

REPORT INFORMATION
  Report Type: Spontaneous
  Country: US (occurrence: None)
  Receive Date: 20150522
  Receipt Date: 20150522
  Transmission Date: 20150821
  Serious: Yes (Life-Threatening, Hospitalization)
  Sender: FDA-Public Use
  Company Number: None

PATIENT
  Age: 68 Year
  Sex: Male
  Weight: 102.8 kg

DRUGS (1)
  1. PIPERACILLIN/TAZOBACTAM [Suspect]
     Active Substance: PIPERACILLIN SODIUM\TAZOBACTAM SODIUM
     Indication: UROSEPSIS
     Route: 042
     Dates: start: 20150214, end: 20150214

REACTIONS (5)
  - Respiratory depression [None]
  - Rash [None]
  - Tachycardia [None]
  - Unresponsive to stimuli [None]
  - Hyperhidrosis [None]

NARRATIVE: CASE EVENT DATE: 20150214
